FAERS Safety Report 21572634 (Version 3)
Quarter: 2022Q4

REPORT INFORMATION
  Report Type: Spontaneous
  Country: US (occurrence: US)
  Receive Date: 20221109
  Receipt Date: 20221119
  Transmission Date: 20230112
  Serious: No
  Sender: FDA-Public Use
  Company Number: US-BAXTER-2022BAX023806

PATIENT
  Age: 71 Year
  Sex: Male

DRUGS (4)
  1. HEPARIN SODIUM [Suspect]
     Active Substance: HEPARIN SODIUM
     Indication: Anticoagulant therapy
     Dosage: UNK
     Route: 042
     Dates: start: 20221102, end: 20221102
  2. NITROGLYCERIN IN DEXTROSE [Suspect]
     Active Substance: NITROGLYCERIN
     Indication: Catheterisation cardiac
     Dosage: 200 MCG (50MG/250ML)
     Route: 022
     Dates: start: 20221102, end: 20221102
  3. MIDAZOLAM [Suspect]
     Active Substance: MIDAZOLAM
     Indication: Sedation
     Dosage: UNK
     Route: 042
     Dates: start: 20221102, end: 20221102
  4. FENTANYL [Suspect]
     Active Substance: FENTANYL
     Indication: Sedation
     Dosage: UNK
     Route: 042
     Dates: start: 20221102, end: 20221102

REACTIONS (1)
  - Hypotension [Recovered/Resolved]

NARRATIVE: CASE EVENT DATE: 20221102
